FAERS Safety Report 17333510 (Version 1)
Quarter: 2020Q1

REPORT INFORMATION
  Report Type: Spontaneous
  Country: CA (occurrence: CA)
  Receive Date: 20200128
  Receipt Date: 20200128
  Transmission Date: 20200409
  Serious: Yes (Other)
  Sender: FDA-Public Use
  Company Number: CA-PURDUE PHARMA-CAN-2020-0010559

PATIENT
  Age: 6 Year
  Sex: Male

DRUGS (3)
  1. BIPHENTIN [Suspect]
     Active Substance: METHYLPHENIDATE
     Indication: ATTENTION DEFICIT/HYPERACTIVITY DISORDER
     Dosage: 30 MG, DAILY
     Route: 065
     Dates: start: 201901
  2. BIPHENTIN [Suspect]
     Active Substance: METHYLPHENIDATE
     Dosage: UNK
     Route: 065
     Dates: start: 2018, end: 201901
  3. RITALIN [Suspect]
     Active Substance: METHYLPHENIDATE HYDROCHLORIDE
     Indication: ATTENTION DEFICIT/HYPERACTIVITY DISORDER
     Dosage: 10 MG, DAILY
     Route: 048

REACTIONS (1)
  - Blindness transient [Recovered/Resolved]
